FAERS Safety Report 19819751 (Version 1)
Quarter: 2021Q3

REPORT INFORMATION
  Report Type: Other
  Country: CA (occurrence: CA)
  Receive Date: 20210913
  Receipt Date: 20210913
  Transmission Date: 20211014
  Serious: Yes (Other)
  Sender: FDA-Public Use
  Company Number: CA-CELLTRION INC.-2021CA012235

PATIENT

DRUGS (18)
  1. RITUXIMAB. [Suspect]
     Active Substance: RITUXIMAB
     Indication: RHEUMATOID ARTHRITIS
     Dosage: UNK
     Route: 042
  2. METHOTREXATE. [Concomitant]
     Active Substance: METHOTREXATE
     Route: 037
  3. TRESIBA [Concomitant]
     Active Substance: INSULIN DEGLUDEC
     Indication: DIABETES MELLITUS
  4. TYLENOL [Concomitant]
     Active Substance: ACETAMINOPHEN
     Indication: PREMEDICATION
     Dosage: 650 MILLIGRAM
     Route: 065
  5. FOLIC ACID. [Concomitant]
     Active Substance: FOLIC ACID
  6. HUMALOG [Concomitant]
     Active Substance: INSULIN LISPRO
  7. METOPROLOL. [Concomitant]
     Active Substance: METOPROLOL
  8. SEPTRA [Concomitant]
     Active Substance: SULFAMETHOXAZOLE\TRIMETHOPRIM
     Indication: ULCER
  9. RITUXIMAB. [Suspect]
     Active Substance: RITUXIMAB
     Dosage: 1000 MILLIGRAM
     Route: 042
  10. ACETAMINOPHEN;CODEINE PHOSPHATE [Concomitant]
     Active Substance: ACETAMINOPHEN\CODEINE PHOSPHATE
  11. SOLU?MEDROL [Concomitant]
     Active Substance: METHYLPREDNISOLONE SODIUM SUCCINATE
     Indication: PREMEDICATION
     Dosage: 100 MILLIGRAM
     Route: 042
  12. ACETYLSALICYLIC ACID [Concomitant]
     Active Substance: ASPIRIN
     Dosage: 81 MILLIGRAM
     Route: 065
  13. LANSOPRAZOLE. [Concomitant]
     Active Substance: LANSOPRAZOLE
  14. METFORMIN HYDROCHLORIDE;SAXAGLIPTIN HYDROCHLORIDE [Concomitant]
  15. BENADRYL [Concomitant]
     Active Substance: DIPHENHYDRAMINE HYDROCHLORIDE
     Indication: PREMEDICATION
     Dosage: 50 MILLIGRAM
     Route: 048
  16. HYDROCHLOROTHIAZIDE. [Concomitant]
     Active Substance: HYDROCHLOROTHIAZIDE
  17. PREDNISONE. [Concomitant]
     Active Substance: PREDNISONE
  18. TELMISARTAN. [Concomitant]
     Active Substance: TELMISARTAN

REACTIONS (1)
  - Osteoporosis [Unknown]
